FAERS Safety Report 7819276-3 (Version None)
Quarter: 2011Q4

REPORT INFORMATION
  Report Type: 
  Country: None (occurrence: None)
  Receive Date: 20111018
  Receipt Date: 20110525
  Transmission Date: 20120403
  Serious: No
  Sender: FDA-Public Use
  Company Number: US-ASTRAZENECA-2011SE32550

PATIENT
  Age: 76 Year
  Sex: Male

DRUGS (5)
  1. LIPITOR [Concomitant]
  2. GLYBERIDE [Concomitant]
  3. AMLODIPINE [Concomitant]
  4. SYMBICORT [Suspect]
     Indication: BRONCHITIS
     Dosage: 2 PUFFS BID
     Route: 055
     Dates: start: 20110524
  5. METFORMIN HYDROCHLORIDE [Concomitant]

REACTIONS (3)
  - NAUSEA [None]
  - HYPERHIDROSIS [None]
  - VOMITING [None]
